FAERS Safety Report 9286964 (Version 1)
Quarter: 2013Q2

REPORT INFORMATION
  Report Type: Spontaneous
  Country: NL (occurrence: NL)
  Receive Date: 20130513
  Receipt Date: 20130513
  Transmission Date: 20140414
  Serious: Yes (Other)
  Sender: FDA-Public Use
  Company Number: NL-PERRIGO-13NL004834

PATIENT
  Sex: 0

DRUGS (1)
  1. CLOBETASOL PROPIONATE RX 0.05% 2P1 [Suspect]
     Indication: PEMPHIGOID
     Dosage: 20-40 GRAMS/DAY, TAPERED DOSE
     Route: 061
     Dates: start: 2002

REACTIONS (2)
  - Adrenal insufficiency [Unknown]
  - Off label use [Unknown]
